FAERS Safety Report 7569668-5 (Version None)
Quarter: 2011Q2

REPORT INFORMATION
  Report Type: 
  Country: None (occurrence: None)
  Receive Date: 20110617
  Receipt Date: 20110613
  Transmission Date: 20111010
  Serious: Yes (Death)
  Sender: FDA-Public Use
  Company Number: 2011SP027319

PATIENT
  Age: 73 Year
  Sex: Female
  Weight: 47.5 kg

DRUGS (9)
  1. TEMODAL [Suspect]
     Indication: GLIOBLASTOMA MULTIFORME
     Dosage: 150 MG/M2;PO 200MG/M2;PO
     Route: 048
     Dates: start: 20070220, end: 20070224
  2. TEMODAL [Suspect]
     Indication: NEOPLASM RECURRENCE
     Dosage: 150 MG/M2;PO 200MG/M2;PO
     Route: 048
     Dates: start: 20070220, end: 20070224
  3. TEMODAL [Suspect]
     Indication: GLIOBLASTOMA MULTIFORME
     Dosage: 150 MG/M2;PO 200MG/M2;PO
     Route: 048
     Dates: start: 20070320, end: 20071103
  4. TEMODAL [Suspect]
     Indication: NEOPLASM RECURRENCE
     Dosage: 150 MG/M2;PO 200MG/M2;PO
     Route: 048
     Dates: start: 20070320, end: 20071103
  5. NAUZELIN [Concomitant]
  6. MUCOSTA [Concomitant]
  7. SULFAMETHOXAZOLE [Concomitant]
  8. MAGMITT [Concomitant]
  9. KYTRIL [Concomitant]

REACTIONS (1)
  - DEATH [None]
